FAERS Safety Report 4522589-4 (Version None)
Quarter: 2004Q4

REPORT INFORMATION
  Report Type: 
  Country: None (occurrence: None)
  Receive Date: 20041207
  Receipt Date: 20041118
  Transmission Date: 20050328
  Serious: Yes (Hospitalization)
  Sender: FDA-Public Use
  Company Number: FR_041105230

PATIENT
  Age: 38 Year
  Sex: Female

DRUGS (3)
  1. ZYPREXA [Suspect]
     Indication: SCHIZOPHRENIA
     Dosage: 15 MG/1 DAY
     Dates: start: 20040927, end: 20041018
  2. TERCIAN (CYAMEMAZINE) [Concomitant]
  3. RISPERDAL [Concomitant]

REACTIONS (1)
  - HEPATOCELLULAR DAMAGE [None]
